FAERS Safety Report 19380604 (Version 1)
Quarter: 2021Q2

REPORT INFORMATION
  Report Type: Spontaneous
  Country: US (occurrence: US)
  Receive Date: 20210607
  Receipt Date: 20210607
  Transmission Date: 20210717
  Serious: No
  Sender: FDA-Public Use
  Company Number: US-009507513-1811USA008823

PATIENT
  Sex: Male

DRUGS (2)
  1. STERILE DILUENT (WATER) [Suspect]
     Active Substance: WATER
     Indication: PROPHYLAXIS
     Dosage: 0.65 MILLILITER
     Route: 058
     Dates: start: 20131029
  2. ZOSTAVAX [Suspect]
     Active Substance: VARICELLA-ZOSTER VIRUS STRAIN OKA/MERCK LIVE ANTIGEN
     Indication: PROPHYLAXIS
     Dosage: .65 MILLILITER
     Route: 058
     Dates: start: 20131029

REACTIONS (2)
  - Vaccination failure [Unknown]
  - Herpes zoster [Unknown]

NARRATIVE: CASE EVENT DATE: 20170125
